FAERS Safety Report 9901935 (Version 2)
Quarter: 2014Q1

REPORT INFORMATION
  Report Type: Spontaneous
  Country: DE (occurrence: DE)
  Receive Date: 20140217
  Receipt Date: 20140218
  Transmission Date: 20141002
  Serious: Yes (Life-Threatening)
  Sender: FDA-Public Use
  Company Number: DE-GLAXOSMITHKLINE-D0082808A

PATIENT
  Age: 79 Year
  Sex: Male
  Weight: 85.1 kg

DRUGS (5)
  1. VOTRIENT [Suspect]
     Indication: RENAL CELL CARCINOMA
     Route: 065
     Dates: start: 20131217, end: 20140207
  2. MARCUMAR [Concomitant]
     Route: 065
  3. ALDACTONE [Concomitant]
     Dosage: 25MG PER DAY
     Route: 065
  4. LISINOPRIL [Concomitant]
     Dosage: 5MG PER DAY
     Route: 065
  5. BISOPROLOL [Concomitant]
     Dosage: 1.25MG PER DAY
     Route: 065

REACTIONS (7)
  - Left ventricular dysfunction [Not Recovered/Not Resolved]
  - Dyspnoea [Unknown]
  - Asthenia [Unknown]
  - Dysphonia [Unknown]
  - Nausea [Unknown]
  - Defaecation urgency [Unknown]
  - Dizziness [Unknown]
